FAERS Safety Report 10587793 (Version 2)
Quarter: 2015Q2

REPORT INFORMATION
  Report Type: Spontaneous
  Country: AT (occurrence: AT)
  Receive Date: 20141117
  Receipt Date: 20150520
  Transmission Date: 20150821
  Serious: Yes (Life-Threatening)
  Sender: FDA-Public Use
  Company Number: AT-ASTRAZENECA-2014SE85739

PATIENT

DRUGS (1)
  1. CARBOSTESIN [Suspect]
     Active Substance: BUPIVACAINE HYDROCHLORIDE
     Route: 037

REACTIONS (1)
  - Resuscitation [Unknown]
